FAERS Safety Report 8796635 (Version 3)
Quarter: 2014Q4

REPORT INFORMATION
  Report Type: Report from Study
  Country: HK (occurrence: HK)
  Receive Date: 20120919
  Receipt Date: 20141013
  Transmission Date: 20150529
  Serious: Yes (Hospitalization)
  Sender: FDA-Public Use
  Company Number: HK-MERCK-1107USA02552

PATIENT
  Age: 71 Year
  Sex: Female
  Weight: 50.5 kg

DRUGS (22)
  1. BLINDED ODANACATIB [Suspect]
     Active Substance: UNSPECIFIED INGREDIENT
     Dosage: UNK
     Route: 048
     Dates: start: 20090220, end: 20090626
  2. ELANTAN [Suspect]
     Active Substance: ISOSORBIDE MONONITRATE
     Indication: ACCIDENTAL EXPOSURE TO PRODUCT
     Dosage: 20 MG, ONCE
     Route: 048
     Dates: start: 20110704, end: 20110704
  3. PROTAPHAN [Concomitant]
     Indication: DIABETES MELLITUS
     Dosage: 20 IU, QD
     Route: 058
     Dates: start: 20100203, end: 20110804
  4. CALCIUM CARBONATE. [Suspect]
     Active Substance: CALCIUM CARBONATE
     Indication: ROUTINE HEALTH MAINTENANCE
     Dosage: 600 MG, BID
     Route: 048
     Dates: start: 20080125
  5. UREA CREAM [Concomitant]
     Indication: PROPHYLAXIS
     Dosage: 1 APPLICATION, BID
     Route: 061
     Dates: start: 20100804
  6. AMLODIPINE BESYLATE. [Concomitant]
     Active Substance: AMLODIPINE BESYLATE
     Indication: HYPERTENSION
     Dosage: 5 MG, QD
     Route: 048
     Dates: start: 20110302, end: 20111111
  7. METOPROLOL [Suspect]
     Active Substance: METOPROLOL
     Indication: ACCIDENTAL EXPOSURE TO PRODUCT
     Dosage: 12.5 MG, ONCE
     Route: 048
     Dates: start: 20110704, end: 20110704
  8. METFORMIN [Concomitant]
     Active Substance: METFORMIN HYDROCHLORIDE
     Indication: DIABETES MELLITUS
     Dosage: 1000 MG, BID
     Route: 048
     Dates: start: 19880715
  9. INDAPAMIDE. [Concomitant]
     Active Substance: INDAPAMIDE
     Indication: HYPERTENSION
     Dosage: 2.5 MG, QD
     Route: 048
     Dates: start: 20110119, end: 20110830
  10. RIVASTIGMINE [Suspect]
     Active Substance: RIVASTIGMINE
     Indication: ACCIDENTAL EXPOSURE TO PRODUCT
     Dosage: 4.5 MG, ONCE
     Route: 048
     Dates: start: 20110704, end: 20110704
  11. DILTIAZEM HYDROCHLORIDE. [Concomitant]
     Active Substance: DILTIAZEM HYDROCHLORIDE
     Indication: HYPERTENSION
     Dosage: 200 MG, QD
     Route: 048
     Dates: start: 20100203
  12. CYANOCOBALAMIN. [Concomitant]
     Active Substance: CYANOCOBALAMIN
     Indication: VITAMIN B12 DEFICIENCY
     Dosage: 1000 MICROGRAM, QM
     Route: 030
     Dates: start: 20100909
  13. VITAMIN D3 [Suspect]
     Active Substance: CHOLECALCIFEROL
     Indication: NUTRITIONAL SUPPLEMENTATION
     Dosage: 5600 IU, QW
     Route: 048
     Dates: start: 20080125
  14. PYRIDOXINE [Suspect]
     Active Substance: PYRIDOXINE
     Indication: ACCIDENTAL EXPOSURE TO PRODUCT
     Dosage: 50 MG, ONCE
     Route: 048
     Dates: start: 20110704, end: 20110704
  15. ATENOLOL. [Concomitant]
     Active Substance: ATENOLOL
     Indication: HYPERTENSION
     Dosage: 50 MG, QD
     Route: 048
     Dates: start: 20110202, end: 20111113
  16. PEPCIDINE [Suspect]
     Active Substance: FAMOTIDINE
     Indication: ACCIDENTAL EXPOSURE TO PRODUCT
     Dosage: 20 MG, ONCE
     Route: 048
     Dates: start: 20110704, end: 20110704
  17. BLINDED ODANACATIB [Suspect]
     Active Substance: UNSPECIFIED INGREDIENT
     Dosage: UNK
     Route: 048
     Dates: start: 20080926, end: 20090207
  18. BLINDED ODANACATIB [Suspect]
     Active Substance: UNSPECIFIED INGREDIENT
     Dosage: UNK
     Route: 048
     Dates: start: 20090710, end: 20100108
  19. ASPIRIN. [Concomitant]
     Active Substance: ASPIRIN
     Indication: PROPHYLAXIS
     Dosage: 80 MG, QD
     Route: 048
     Dates: start: 20081029, end: 20110801
  20. BLINDED ODANACATIB [Suspect]
     Active Substance: UNSPECIFIED INGREDIENT
     Indication: OSTEOPOROSIS POSTMENOPAUSAL
     Dosage: UNK
     Route: 048
     Dates: start: 20080217, end: 20080912
  21. BLINDED ODANACATIB [Suspect]
     Active Substance: UNSPECIFIED INGREDIENT
     Dosage: UNK
     Route: 048
     Dates: start: 20100122
  22. LOSARTAN POTASSIUM TABLETS [Concomitant]
     Active Substance: LOSARTAN POTASSIUM
     Indication: HYPERTENSION
     Dosage: 100 MG, QD
     Route: 048
     Dates: start: 20110119

REACTIONS (1)
  - Drug dispensing error [Recovered/Resolved]

NARRATIVE: CASE EVENT DATE: 20110704
